FAERS Safety Report 9853872 (Version 2)
Quarter: 2014Q2

REPORT INFORMATION
  Report Type: Spontaneous
  Country: DE (occurrence: DE)
  Receive Date: 20140129
  Receipt Date: 20140613
  Transmission Date: 20141212
  Serious: Yes (Other)
  Sender: FDA-Public Use
  Company Number: DE-US-EMD SERONO, INC.-7265265

PATIENT
  Age: 47 Year
  Sex: Male
  Weight: 85 kg

DRUGS (3)
  1. REBIF [Suspect]
     Indication: MULTIPLE SCLEROSIS
     Route: 058
     Dates: start: 2003, end: 2008
  2. REBIF [Suspect]
     Route: 058
     Dates: start: 2008, end: 2012
  3. REBIF [Suspect]
     Route: 058
     Dates: start: 2012, end: 201305

REACTIONS (3)
  - Osteonecrosis [Not Recovered/Not Resolved]
  - Arthralgia [Not Recovered/Not Resolved]
  - Influenza like illness [Unknown]
